FAERS Safety Report 10512493 (Version 2)
Quarter: 2014Q4

REPORT INFORMATION
  Report Type: Report from Study
  Country: MX (occurrence: MX)
  Receive Date: 20141011
  Receipt Date: 20141015
  Transmission Date: 20150528
  Serious: Yes (Other)
  Sender: FDA-Public Use
  Company Number: PHHY2014MX131988

PATIENT
  Age: 63 Year
  Sex: Female

DRUGS (1)
  1. EXFORGE HCT [Suspect]
     Active Substance: AMLODIPINE BESYLATE\HYDROCHLOROTHIAZIDE\VALSARTAN
     Indication: HYPERTENSION
     Dosage: 1 OR 2 DAILY
     Route: 048
     Dates: start: 2010

REACTIONS (13)
  - Weight decreased [Recovering/Resolving]
  - Blood pressure increased [Not Recovered/Not Resolved]
  - Anxiety [Not Recovered/Not Resolved]
  - Sjogren^s syndrome [Not Recovered/Not Resolved]
  - Eating disorder [Recovered/Resolved]
  - Pneumonia [Recovered/Resolved]
  - Mouth ulceration [Recovered/Resolved]
  - Chronic obstructive pulmonary disease [Not Recovered/Not Resolved]
  - Arthritis [Not Recovered/Not Resolved]
  - Movement disorder [Not Recovered/Not Resolved]
  - Mastication disorder [Recovered/Resolved]
  - Weight increased [Not Recovered/Not Resolved]
  - Dry mouth [Recovered/Resolved]

NARRATIVE: CASE EVENT DATE: 2012
